FAERS Safety Report 6905463-5 (Version None)
Quarter: 2010Q3

REPORT INFORMATION
  Report Type: 
  Country: None (occurrence: None)
  Receive Date: 20100804
  Receipt Date: 20100723
  Transmission Date: 20110219
  Serious: Yes (Other)
  Sender: FDA-Public Use
  Company Number: PHHY2010JP29845

PATIENT
  Sex: Male

DRUGS (8)
  1. RASILEZ [Suspect]
     Indication: HYPERTENSION
     Dosage: 150 MG, QD
     Route: 048
     Dates: start: 20100414, end: 20100421
  2. RASILEZ [Suspect]
     Dosage: 300 MG DAILY
     Route: 048
     Dates: start: 20100422, end: 20100506
  3. RASILEZ [Suspect]
     Dosage: UNK
  4. PLAS-AMINO [Suspect]
     Indication: HYPOALBUMINAEMIA
     Dosage: 500ML DAILY
     Dates: start: 20100501, end: 20100511
  5. NORVAC /DEN/ [Concomitant]
     Dosage: 10 MG, UNK
     Route: 048
     Dates: start: 20100401
  6. MICARDIS [Concomitant]
     Indication: HYPERTENSION
     Dosage: 80 MG, UNK
     Route: 048
     Dates: start: 20100401
  7. DISOPYRAMIDE [Concomitant]
     Dosage: 1.5 DF, UNK
     Route: 048
     Dates: start: 20100408
  8. ARTIST [Concomitant]
     Dosage: 2.5 MG, UNK
     Route: 048
     Dates: start: 20100401

REACTIONS (2)
  - ACIDOSIS [None]
  - RENAL DISORDER [None]
